FAERS Safety Report 9324862 (Version 1)
Quarter: 2013Q2

REPORT INFORMATION
  Report Type: Spontaneous
  Country: US (occurrence: US)
  Receive Date: 20130603
  Receipt Date: 20130603
  Transmission Date: 20140414
  Serious: No
  Sender: FDA-Public Use
  Company Number: US-009507513-1305USA016010

PATIENT
  Age: 14 Year
  Sex: Male
  Weight: 45.35 kg

DRUGS (2)
  1. CLARITIN REDITABS [Suspect]
     Indication: MIGRAINE
     Dosage: 10 MG, ONCE
     Route: 048
     Dates: start: 20130513
  2. CLARITIN REDITABS [Suspect]
     Indication: SEASONAL ALLERGY
     Dosage: 10 MG, ONCE
     Route: 048
     Dates: start: 20130514

REACTIONS (2)
  - Overdose [Unknown]
  - No adverse event [Unknown]
